FAERS Safety Report 5744103-8 (Version None)
Quarter: 2008Q2

REPORT INFORMATION
  Report Type: 
  Country: None (occurrence: None)
  Receive Date: 20080520
  Receipt Date: 20080512
  Transmission Date: 20081010
  Serious: Yes (Other)
  Sender: FDA-Public Use
  Company Number: B0359674A

PATIENT
  Age: 29 Year
  Sex: Female

DRUGS (5)
  1. SEROXAT [Suspect]
     Route: 065
     Dates: start: 20020128
  2. PROZAC [Concomitant]
     Indication: DEPRESSION
     Dosage: 20MG PER DAY
     Dates: start: 20021127, end: 20030101
  3. NICOTINE [Concomitant]
     Indication: THERAPEUTIC PROCEDURE
  4. ZOPICLONE [Concomitant]
     Dates: start: 20020929
  5. NEFAZODONE HCL [Concomitant]
     Dates: start: 20030101

REACTIONS (15)
  - ABNORMAL DREAMS [None]
  - AGGRESSION [None]
  - ANGER [None]
  - ANXIETY [None]
  - ANXIETY DISORDER [None]
  - CRYING [None]
  - DEPRESSION [None]
  - DRUG WITHDRAWAL SYNDROME [None]
  - MUSCLE TWITCHING [None]
  - NERVOUSNESS [None]
  - OVERDOSE [None]
  - PANIC REACTION [None]
  - PARAESTHESIA [None]
  - SUICIDAL BEHAVIOUR [None]
  - TREMOR [None]
